FAERS Safety Report 21439913 (Version 1)
Quarter: 2022Q4

REPORT INFORMATION
  Report Type: Spontaneous
  Country: US (occurrence: None)
  Receive Date: 20221007
  Receipt Date: 20221007
  Transmission Date: 20230113
  Serious: Yes (Other)
  Sender: FDA-Public Use
  Company Number: None

PATIENT
  Age: 48 Year
  Sex: Female
  Weight: 117 kg

DRUGS (1)
  1. DOXYCYCLINE HYCLATE [Suspect]
     Active Substance: DOXYCYCLINE HYCLATE
     Indication: Perioral dermatitis
     Dosage: FREQUENCY : TWICE A DAY;?
     Route: 048
     Dates: start: 20220930, end: 20221007

REACTIONS (8)
  - Anger [None]
  - Irritability [None]
  - Depression [None]
  - Feeling of despair [None]
  - Suicidal ideation [None]
  - Crying [None]
  - Panic attack [None]
  - Drug hypersensitivity [None]

NARRATIVE: CASE EVENT DATE: 20221001
